FAERS Safety Report 6887812-X (Version None)
Quarter: 2010Q3

REPORT INFORMATION
  Report Type: 
  Country: None (occurrence: None)
  Receive Date: 20100730
  Receipt Date: 20100722
  Transmission Date: 20110219
  Serious: Yes (Hospitalization)
  Sender: FDA-Public Use
  Company Number: TR-CELGENEUS-THATR200800273

PATIENT
  Sex: Male
  Weight: 57 kg

DRUGS (7)
  1. THALIDOMIDE [Suspect]
     Indication: MULTIPLE MYELOMA
     Route: 048
     Dates: start: 20080415
  2. MELPHALAN [Suspect]
     Indication: MULTIPLE MYELOMA
     Route: 065
     Dates: start: 20080415
  3. PREDNISOLONE [Suspect]
     Indication: MULTIPLE MYELOMA
     Route: 065
     Dates: start: 20080415
  4. FOLIC ACID [Concomitant]
     Indication: NERVOUS SYSTEM DISORDER
     Route: 065
  5. VITAMIN B [Concomitant]
     Indication: NERVOUS SYSTEM DISORDER
     Route: 065
  6. TRAMADOL HYDROCHLORIDE [Concomitant]
     Indication: NERVOUS SYSTEM DISORDER
     Route: 065
  7. DEXAMETHASONE [Concomitant]
     Indication: NERVOUS SYSTEM DISORDER
     Route: 065

REACTIONS (2)
  - LUNG INFECTION [None]
  - NERVOUS SYSTEM DISORDER [None]
